FAERS Safety Report 23701121 (Version 2)
Quarter: 2024Q2

REPORT INFORMATION
  Report Type: Spontaneous
  Country: US (occurrence: US)
  Receive Date: 20240403
  Receipt Date: 20240403
  Transmission Date: 20240716
  Serious: No
  Sender: FDA-Public Use
  Company Number: US-AMGEN-USASP2024065328

PATIENT
  Age: 28 Year
  Sex: Female

DRUGS (2)
  1. AIMOVIG [Suspect]
     Active Substance: ERENUMAB-AOOE
     Indication: Migraine
     Dosage: 140 MILLIGRAM, QMO
     Route: 058
     Dates: start: 2019
  2. NAPROXEN [Concomitant]
     Active Substance: NAPROXEN
     Indication: Migraine
     Dosage: 550 MILLIGRAM, AS NECESSARY

REACTIONS (3)
  - Headache [Not Recovered/Not Resolved]
  - Injection site pain [Unknown]
  - Feeling abnormal [Unknown]

NARRATIVE: CASE EVENT DATE: 20240325
